FAERS Safety Report 23698765 (Version 1)
Quarter: 2024Q2

REPORT INFORMATION
  Report Type: Spontaneous
  Country: US (occurrence: None)
  Receive Date: 20240402
  Receipt Date: 20240402
  Transmission Date: 20240716
  Serious: Yes (Death)
  Sender: FDA-Public Use
  Company Number: None

PATIENT
  Age: 71 Year
  Sex: Male
  Weight: 121.9 kg

DRUGS (8)
  1. MYCOPHENOLIC ACID [Suspect]
     Active Substance: MYCOPHENOLIC ACID
     Indication: Heart transplant
     Dosage: FREQUENCY : TWICE A DAY;?
     Route: 048
     Dates: start: 20200520, end: 20240114
  2. TACROLIMUS [Suspect]
     Active Substance: TACROLIMUS
     Indication: Heart transplant
     Dosage: OTHER FREQUENCY : 1MG QAM 0.5MG QPM;?
     Route: 048
     Dates: start: 20200520, end: 20240115
  3. PREDNISONE [Concomitant]
     Active Substance: PREDNISONE
     Dates: start: 20200520, end: 20240114
  4. CARVEDILOL [Concomitant]
     Active Substance: CARVEDILOL
  5. Clopidegrel 75 mg [Concomitant]
  6. SIMVASTATIN [Concomitant]
     Active Substance: SIMVASTATIN
  7. Glimepiride  4 mg [Concomitant]
  8. Hydralazine 25 ng [Concomitant]

REACTIONS (1)
  - Death [None]

NARRATIVE: CASE EVENT DATE: 20240114
